FAERS Safety Report 13445347 (Version 2)
Quarter: 2017Q2

REPORT INFORMATION
  Report Type: Report from Study
  Country: US (occurrence: US)
  Receive Date: 20170414
  Receipt Date: 20170608
  Transmission Date: 20170830
  Serious: Yes (Death)
  Sender: FDA-Public Use
  Company Number: PHEH2017US010853

PATIENT
  Sex: Female

DRUGS (1)
  1. AFINITOR [Suspect]
     Active Substance: EVEROLIMUS
     Indication: UTERINE CANCER
     Dosage: 5 MG, QD
     Route: 048
     Dates: start: 20170310

REACTIONS (2)
  - Product use in unapproved indication [Unknown]
  - Endometrial cancer metastatic [Fatal]
